FAERS Safety Report 5905728-X (Version None)
Quarter: 2008Q4

REPORT INFORMATION
  Report Type: 
  Country: None (occurrence: None)
  Receive Date: 20081002
  Receipt Date: 20080926
  Transmission Date: 20090506
  Serious: Yes (Other)
  Sender: FDA-Public Use
  Company Number: IT-BAYER-200814858GPV

PATIENT
  Age: 67 Year
  Sex: Male

DRUGS (1)
  1. ASPIRIN [Suspect]
     Indication: RETINAL VEIN THROMBOSIS
     Dosage: TOTAL DAILY DOSE: 100 MG  UNIT DOSE: 100 MG
     Route: 048
     Dates: start: 20071130, end: 20071209

REACTIONS (2)
  - EPISTAXIS [None]
  - HAEMATEMESIS [None]
